FAERS Safety Report 21124077 (Version 3)
Quarter: 2024Q1

REPORT INFORMATION
  Report Type: Report from Study
  Country: US (occurrence: US)
  Receive Date: 20220725
  Receipt Date: 20240208
  Transmission Date: 20240410
  Serious: Yes (Death, Hospitalization, Other)
  Sender: FDA-Public Use
  Company Number: US-ACADIA PHARMACEUTICALS INC.-ACA-2022-PIM-002397

PATIENT
  Age: 92 Year
  Sex: Female

DRUGS (3)
  1. NUPLAZID [Suspect]
     Active Substance: PIMAVANSERIN TARTRATE
     Indication: Parkinson^s disease
     Dosage: 34 MILLIGRAM, QD
     Route: 048
     Dates: start: 202206
  2. NUPLAZID [Suspect]
     Active Substance: PIMAVANSERIN TARTRATE
     Indication: Dyskinesia
     Dosage: 34 MILLIGRAM, QD
     Route: 048
     Dates: start: 202309
  3. LEVAQUIN [Suspect]
     Active Substance: LEVOFLOXACIN
     Route: 042

REACTIONS (9)
  - Death [Fatal]
  - Unresponsive to stimuli [Unknown]
  - Dehydration [Unknown]
  - Urinary tract infection pseudomonal [Unknown]
  - Fatigue [Unknown]
  - Rash erythematous [Unknown]
  - Urinary tract infection [Unknown]
  - Unresponsive to stimuli [Unknown]
  - Hallucination [Unknown]

NARRATIVE: CASE EVENT DATE: 20220713
